FAERS Safety Report 5078159-5 (Version None)
Quarter: 2006Q3

REPORT INFORMATION
  Report Type: 
  Country: None (occurrence: None)
  Receive Date: 20060720
  Receipt Date: 20060505
  Transmission Date: 20061208
  Serious: Yes (Life-Threatening, Other)
  Sender: FDA-Public Use
  Company Number: 2006MP000706

PATIENT
  Age: 80 Year
  Sex: Male

DRUGS (3)
  1. AGGRASTAT [Suspect]
     Indication: CORONARY ANGIOPLASTY
     Dosage: IV
     Route: 042
     Dates: start: 20060406, end: 20060407
  2. CLOPIDOGREL BISULFATE [Suspect]
     Indication: CORONARY ANGIOPLASTY
     Dosage: 300 + 75 MG
     Dates: start: 20060406, end: 20060406
  3. CLOPIDOGREL BISULFATE [Suspect]
     Indication: CORONARY ANGIOPLASTY
     Dosage: 300 + 75 MG
     Dates: start: 20060406, end: 20060406

REACTIONS (3)
  - PETECHIAE [None]
  - RENAL IMPAIRMENT [None]
  - THROMBOCYTOPENIA [None]
